FAERS Safety Report 9084147 (Version 3)
Quarter: 2013Q3

REPORT INFORMATION
  Report Type: Report from Study
  Country: US (occurrence: US)
  Receive Date: 20130130
  Receipt Date: 20130910
  Transmission Date: 20140515
  Serious: Yes (Death, Hospitalization)
  Sender: FDA-Public Use
  Company Number: US-ELI_LILLY_AND_COMPANY-US201208001002

PATIENT
  Age: 69 Year
  Sex: Female

DRUGS (2)
  1. TERIPARATIDE [Suspect]
     Indication: OSTEOPOROSIS
     Dosage: 20 UG, QD
     Dates: start: 20111001
  2. TERIPARATIDE [Suspect]
     Dosage: 20 UG, QD

REACTIONS (6)
  - Death [Fatal]
  - Cardiac failure [Unknown]
  - Pneumonia [Unknown]
  - Visual acuity reduced [Not Recovered/Not Resolved]
  - Depression [Unknown]
  - Dyspnoea [Unknown]
